FAERS Safety Report 6296857-2 (Version None)
Quarter: 2009Q3

REPORT INFORMATION
  Report Type: 
  Country: None (occurrence: None)
  Receive Date: 20090804
  Receipt Date: 20090729
  Transmission Date: 20100115
  Serious: Yes (Life-Threatening, Hospitalization)
  Sender: FDA-Public Use
  Company Number: FR-TEVA-204414USA

PATIENT
  Sex: Male

DRUGS (6)
  1. BISELECT [Suspect]
     Route: 048
  2. LEVOTHYROXINE SODIUM [Suspect]
     Route: 048
  3. DI-GESIC [Suspect]
     Dates: end: 20090319
  4. INSULIN [Suspect]
     Route: 058
     Dates: end: 20090319
  5. PRINZIDE [Suspect]
     Route: 048
  6. ACETYLSALICYLIC ACID [Suspect]

REACTIONS (1)
  - HYPOGLYCAEMIC COMA [None]
